FAERS Safety Report 8051518-4 (Version None)
Quarter: 2012Q1

REPORT INFORMATION
  Report Type: 
  Country: None (occurrence: None)
  Receive Date: 20120117
  Receipt Date: 20120112
  Transmission Date: 20120608
  Serious: No
  Sender: FDA-Public Use
  Company Number: US-BAYER-2012-005080

PATIENT

DRUGS (2)
  1. IBUPROFEN (ADVIL) [Concomitant]
     Dosage: 2 ADVIL
  2. ALEVE (CAPLET) [Suspect]
     Dosage: 3 ALEVE
     Route: 048

REACTIONS (2)
  - NO ADVERSE EVENT [None]
  - THERAPEUTIC RESPONSE DECREASED [None]
